FAERS Safety Report 18727449 (Version 1)
Quarter: 2021Q1

REPORT INFORMATION
  Report Type: Spontaneous
  Country: FR (occurrence: FR)
  Receive Date: 20210111
  Receipt Date: 20210111
  Transmission Date: 20210419
  Serious: No
  Sender: FDA-Public Use
  Company Number: FR-ELI_LILLY_AND_COMPANY-FR202101000788

PATIENT
  Age: 19 Year
  Sex: Male

DRUGS (9)
  1. HALDOL [Suspect]
     Active Substance: HALOPERIDOL
     Indication: MANIA
     Dosage: UNK UNK, UNKNOWN
     Route: 048
     Dates: start: 20201014, end: 20201020
  2. ZYPREXA [Suspect]
     Active Substance: OLANZAPINE
     Indication: MANIA
     Dosage: 10 MG, UNKNOWN
     Route: 048
     Dates: start: 20201014, end: 20201020
  3. RISPERDAL [Suspect]
     Active Substance: RISPERIDONE
     Indication: MANIA
     Dosage: UNK UNK, UNKNOWN
     Route: 048
     Dates: start: 20201020, end: 20201104
  4. DEPAKINE [VALPROATE SODIUM] [Suspect]
     Active Substance: VALPROATE SODIUM
     Indication: MANIA
     Dosage: UNK UNK, UNKNOWN
     Route: 048
     Dates: start: 20201020, end: 20201201
  5. VALIUM [Suspect]
     Active Substance: DIAZEPAM
     Indication: AGITATION
     Dosage: UNK UNK, UNKNOWN
     Route: 048
     Dates: start: 20201013, end: 20201130
  6. NOZINAN [LEVOMEPROMAZINE HYDROCHLORIDE] [Suspect]
     Active Substance: LEVOMEPROMAZINE HYDROCHLORIDE
     Indication: AGITATION
     Dosage: UNK UNK, UNKNOWN
     Route: 048
     Dates: start: 20201019, end: 20201104
  7. LOXAPAC [LOXAPINE SUCCINATE] [Suspect]
     Active Substance: LOXAPINE SUCCINATE
     Indication: AGITATION
     Dosage: 1500 MG, DAILY
     Route: 048
     Dates: start: 20201013, end: 20201022
  8. TERCIAN [CYAMEMAZINE TARTRATE] [Suspect]
     Active Substance: CYAMEMAZINE
     Indication: MANIA
     Dosage: UNK UNK, UNKNOWN
     Route: 048
     Dates: start: 20201014, end: 20201016
  9. RIVOTRIL [Suspect]
     Active Substance: CLONAZEPAM
     Indication: AGITATION
     Dosage: UNK UNK, UNKNOWN
     Route: 048
     Dates: start: 20201020, end: 20201028

REACTIONS (3)
  - Neutropenia [Not Recovered/Not Resolved]
  - Lymphopenia [Not Recovered/Not Resolved]
  - Thrombocytopenia [Not Recovered/Not Resolved]

NARRATIVE: CASE EVENT DATE: 20201020
